FAERS Safety Report 4560474-2 (Version None)
Quarter: 2005Q1

REPORT INFORMATION
  Report Type: 
  Country: None (occurrence: None)
  Receive Date: 20050125
  Receipt Date: 20041014
  Transmission Date: 20050727
  Serious: Yes (Hospitalization)
  Sender: FDA-Public Use
  Company Number: US-MERCK-0410USA02359

PATIENT
  Age: 51 Year
  Sex: Female
  Weight: 68 kg

DRUGS (6)
  1. VIOXX [Suspect]
     Indication: MYALGIA
     Route: 048
     Dates: start: 20020401, end: 20021001
  2. VIOXX [Suspect]
     Indication: MUSCULOSKELETAL STIFFNESS
     Route: 048
     Dates: start: 20020401, end: 20021001
  3. KLOR-CON [Concomitant]
     Route: 065
  4. ADVAIR DISKUS 100/50 [Concomitant]
     Route: 065
  5. [THERAPY UNSPECIFIED] [Concomitant]
     Route: 065
  6. ALBUTEROL [Concomitant]
     Route: 065

REACTIONS (18)
  - ANTIPHOSPHOLIPID ANTIBODIES POSITIVE [None]
  - APHASIA [None]
  - BLOOD TRIGLYCERIDES INCREASED [None]
  - CATHETER SITE PHLEBITIS [None]
  - CEREBROVASCULAR ACCIDENT [None]
  - CORONARY ARTERY DISEASE [None]
  - DIZZINESS [None]
  - DYSLIPIDAEMIA [None]
  - DYSPHEMIA [None]
  - FEELING ABNORMAL [None]
  - HEADACHE [None]
  - LOW DENSITY LIPOPROTEIN INCREASED [None]
  - MEMORY IMPAIRMENT [None]
  - OEDEMA PERIPHERAL [None]
  - PHLEBITIS [None]
  - PROTEIN C DECREASED [None]
  - SYPHILIS TEST POSITIVE [None]
  - VISION BLURRED [None]
